FAERS Safety Report 7958422-8 (Version None)
Quarter: 2011Q4

REPORT INFORMATION
  Report Type: 
  Country: None (occurrence: None)
  Receive Date: 20111205
  Receipt Date: 20111129
  Transmission Date: 20120403
  Serious: Yes (Life-Threatening, Hospitalization)
  Sender: FDA-Public Use
  Company Number: US-ROCHE-1017295

PATIENT
  Sex: Female

DRUGS (14)
  1. VITAMIN B COMPLEX CAP [Concomitant]
  2. MAGNESIUM SULFATE [Concomitant]
  3. RITUXAN [Suspect]
     Indication: RHEUMATOID ARTHRITIS
     Dates: start: 20090201
  4. POTASSIUM ACETATE [Concomitant]
     Route: 048
  5. FISH OIL [Concomitant]
  6. FOLIC ACID [Concomitant]
  7. SIMVASTATIN [Concomitant]
     Indication: HYPERCHOLESTEROLAEMIA
     Route: 048
  8. CALCIUM [Concomitant]
  9. VITAMIN D [Concomitant]
  10. ARAVA [Concomitant]
  11. ASPIRIN [Concomitant]
     Route: 048
  12. LASIX [Concomitant]
     Indication: CARDIAC FAILURE CHRONIC
     Route: 048
  13. LEVOTHYROXINE SODIUM [Concomitant]
     Indication: HYPOTHYROIDISM
     Route: 048
  14. PREVACID [Concomitant]

REACTIONS (18)
  - ERYTHEMA [None]
  - FATIGUE [None]
  - MAJOR DEPRESSION [None]
  - HEART RATE INCREASED [None]
  - PARAESTHESIA [None]
  - SNEEZING [None]
  - COLD SWEAT [None]
  - ASTHENIA [None]
  - ALOPECIA [None]
  - TREMOR [None]
  - FLUID OVERLOAD [None]
  - DYSPNOEA [None]
  - CARDIAC FAILURE CONGESTIVE [None]
  - DIZZINESS [None]
  - EXTRASYSTOLES [None]
  - BLOOD PRESSURE INCREASED [None]
  - CHEST DISCOMFORT [None]
  - WEIGHT INCREASED [None]
